FAERS Safety Report 16770159 (Version 2)
Quarter: 2019Q3

REPORT INFORMATION
  Report Type: Spontaneous
  Country: US (occurrence: US)
  Receive Date: 20190904
  Receipt Date: 20190916
  Transmission Date: 20191005
  Serious: No
  Sender: FDA-Public Use
  Company Number: US-GLAXOSMITHKLINE-US2019158172

PATIENT
  Age: 66 Year
  Sex: Female

DRUGS (2)
  1. NICORETTE MINT [Suspect]
     Active Substance: NICOTINE
     Indication: PRODUCT USED FOR UNKNOWN INDICATION
     Dosage: 2 MG, QD (8 TIMES DAILY)
  2. NICORETTE MINT [Suspect]
     Active Substance: NICOTINE
     Dosage: 2 MG, QD (8 TIMES DAILY)

REACTIONS (3)
  - Incorrect dose administered [Unknown]
  - Inappropriate schedule of product administration [Unknown]
  - Nicotine dependence [Unknown]
